FAERS Safety Report 12661252 (Version 2)
Quarter: 2016Q3

REPORT INFORMATION
  Report Type: Spontaneous
  Country: US (occurrence: US)
  Receive Date: 20160817
  Receipt Date: 20160901
  Transmission Date: 20161109
  Serious: No
  Sender: FDA-Public Use
  Company Number: US-RELYPSA-RLY2016000813

PATIENT
  Age: 55 Year
  Sex: Female

DRUGS (8)
  1. VELTASSA [Suspect]
     Active Substance: PATIROMER
     Indication: HYPERKALAEMIA
     Dosage: 8.4 G, QD
     Route: 048
     Dates: start: 20160521, end: 20160521
  2. LEVOTHYROXINE. [Concomitant]
     Active Substance: LEVOTHYROXINE
  3. VITAMINS                           /00067501/ [Concomitant]
     Active Substance: VITAMINS
  4. ELIQUIS [Concomitant]
     Active Substance: APIXABAN
  5. ALLOPURINOL. [Concomitant]
     Active Substance: ALLOPURINOL
  6. RANITIDINE. [Concomitant]
     Active Substance: RANITIDINE
  7. PROPAFENONE. [Concomitant]
     Active Substance: PROPAFENONE
  8. CLONIDINE. [Concomitant]
     Active Substance: CLONIDINE

REACTIONS (4)
  - Diarrhoea [Recovering/Resolving]
  - Abdominal discomfort [Recovered/Resolved]
  - Nausea [Recovered/Resolved]
  - Malaise [Recovering/Resolving]

NARRATIVE: CASE EVENT DATE: 20160522
